FAERS Safety Report 7511437 (Version 4)
Quarter: 2013Q2

REPORT INFORMATION
  Report Type: Report from Study
  Country: IT (occurrence: IT)
  Receive Date: 20100730
  Receipt Date: 20130614
  Transmission Date: 20140414
  Serious: Yes (Hospitalization, Other)
  Sender: FDA-Public Use
  Company Number: IT-JNJFOC-20100706901

PATIENT
  Sex: Male
  Weight: 82 kg

DRUGS (3)
  1. REMICADE [Suspect]
     Indication: COLITIS ULCERATIVE
     Route: 042
     Dates: start: 20080430, end: 20090812
  2. METFORMIN [Concomitant]
     Indication: DIABETES MELLITUS
     Route: 048
     Dates: start: 2005
  3. LIMPIDEX [Concomitant]
     Route: 048
     Dates: start: 201001, end: 20100202

REACTIONS (2)
  - Colitis ulcerative [Recovered/Resolved]
  - Colon dysplasia [Not Recovered/Not Resolved]
